FAERS Safety Report 7831867-2 (Version None)
Quarter: 2011Q4

REPORT INFORMATION
  Report Type: 
  Country: None (occurrence: None)
  Receive Date: 20111021
  Receipt Date: 20111018
  Transmission Date: 20120403
  Serious: Yes (Hospitalization)
  Sender: FDA-Public Use
  Company Number: US-AMGEN-USASP2011050461

PATIENT
  Age: 76 Year
  Sex: Male
  Weight: 77.098 kg

DRUGS (4)
  1. PROLIA [Suspect]
     Indication: PROSTATE CANCER
     Dosage: 60 MG, UNK
     Route: 058
     Dates: start: 20110311
  2. SIMVASTATIN [Concomitant]
  3. PROLIA [Suspect]
     Dosage: 60 MG, UNK
     Route: 058
     Dates: start: 20110929
  4. LEUPROLIDE ACETATE [Concomitant]

REACTIONS (2)
  - CHEMICAL PERITONITIS [None]
  - DUODENAL ULCER PERFORATION [None]
